FAERS Safety Report 17391201 (Version 1)
Quarter: 2020Q1

REPORT INFORMATION
  Report Type: Spontaneous
  Country: US (occurrence: US)
  Receive Date: 20200207
  Receipt Date: 20200207
  Transmission Date: 20200409
  Serious: Yes (Other)
  Sender: FDA-Public Use
  Company Number: US-TEVA-2020-US-1181819

PATIENT
  Sex: Male

DRUGS (1)
  1. TESTOSTERONE CYPIONATE. [Suspect]
     Active Substance: TESTOSTERONE CYPIONATE
     Dosage: 200 MG/ML
     Route: 065

REACTIONS (7)
  - Product label issue [Unknown]
  - Testicular pain [Not Recovered/Not Resolved]
  - Suspected counterfeit product [Unknown]
  - Chest pain [Not Recovered/Not Resolved]
  - Erectile dysfunction [Not Recovered/Not Resolved]
  - Groin pain [Not Recovered/Not Resolved]
  - Product barcode issue [Unknown]
